FAERS Safety Report 9806506 (Version 2)
Quarter: 2014Q1

REPORT INFORMATION
  Report Type: Spontaneous
  Country: US (occurrence: US)
  Receive Date: 20140109
  Receipt Date: 20140117
  Transmission Date: 20141002
  Serious: Yes (Other)
  Sender: FDA-Public Use
  Company Number: US-PFIZER INC-2014004813

PATIENT
  Age: 72 Year
  Sex: Male
  Weight: 106 kg

DRUGS (1)
  1. LYRICA [Suspect]
     Indication: TENDON PAIN
     Dosage: 150MG (TWO CAPSULES OF 75MG) DAILY
     Route: 048

REACTIONS (2)
  - Cataract [Unknown]
  - Eye disorder [Unknown]
